FAERS Safety Report 6469262-3 (Version None)
Quarter: 2009Q4

REPORT INFORMATION
  Report Type: 
  Country: None (occurrence: None)
  Receive Date: 20091203
  Receipt Date: 20080107
  Transmission Date: 20100525
  Serious: Yes (Death, Hospitalization, Other)
  Sender: FDA-Public Use
  Company Number: DE-ELI_LILLY_AND_COMPANY-DE200708002427

PATIENT
  Sex: Female

DRUGS (17)
  1. FORTEO [Suspect]
     Indication: OSTEOPOROSIS
     Dosage: UNK, UNKNOWN
     Route: 065
     Dates: start: 20070509, end: 20070727
  2. FORTEO [Suspect]
     Dosage: UNK, UNKNOWN
     Route: 065
     Dates: start: 20070101
  3. CORTISONE [Concomitant]
  4. IBUPROFEN [Concomitant]
  5. CALCIUM [Concomitant]
  6. FRAGMIN [Concomitant]
  7. FENTANYL [Concomitant]
  8. FRESUBIN ENERGY FIBRE [Concomitant]
  9. FOSAMAX [Concomitant]
  10. FUROSEMIDE [Concomitant]
  11. VOLTAREN [Concomitant]
  12. CIBACEN [Concomitant]
  13. NOVAMINSULFON [Concomitant]
  14. DURAGESIC-100 [Concomitant]
  15. IDEOS [Concomitant]
  16. DREISAFER [Concomitant]
  17. IBUPROFEN TABLETS [Concomitant]

REACTIONS (16)
  - ANAEMIA [None]
  - APHASIA [None]
  - ASTHENIA [None]
  - BACTERIAL INFECTION [None]
  - DIARRHOEA [None]
  - GASTROINTESTINAL INFECTION [None]
  - GENERAL PHYSICAL HEALTH DETERIORATION [None]
  - HOSPITALISATION [None]
  - HYPOKALAEMIA [None]
  - HYPONATRAEMIA [None]
  - LUMBAR VERTEBRAL FRACTURE [None]
  - MULTI-ORGAN FAILURE [None]
  - PAIN [None]
  - SCOLIOSIS [None]
  - URINARY TRACT INFECTION [None]
  - VOMITING [None]
